FAERS Safety Report 5285088-0 (Version None)
Quarter: 2007Q2

REPORT INFORMATION
  Report Type: 
  Country: None (occurrence: None)
  Receive Date: 20070403
  Receipt Date: 20070328
  Transmission Date: 20071010
  Serious: Yes (Death, Other)
  Sender: FDA-Public Use
  Company Number: PHEH2006US13932

PATIENT
  Age: 62 Year
  Sex: Female

DRUGS (1)
  1. ZOMETA [Suspect]
     Dosage: 4 MG EVERY MONTH

REACTIONS (4)
  - ASCITES [None]
  - METASTASES TO LIVER [None]
  - ORAL PAIN [None]
  - TOOTH LOSS [None]
